FAERS Safety Report 9283663 (Version 2)
Quarter: 2013Q2

REPORT INFORMATION
  Report Type: Spontaneous
  Country: GB (occurrence: None)
  Receive Date: 20130506
  Receipt Date: 20130508
  Transmission Date: 20140414
  Serious: Yes (Other)
  Sender: FDA-Public Use
  Company Number: AUR-APL-2013-03572

PATIENT
  Sex: Male
  Weight: 2.27 kg

DRUGS (5)
  1. FLUOXETINE [Suspect]
     Indication: PRODUCT USED FOR UNKNOWN INDICATION
     Route: 064
  2. OLANZAPINE (OLANZAPINE) [Suspect]
     Indication: PRODUCT USED FOR UNKNOWN INDICATION
     Route: 064
  3. METHADONE [Suspect]
     Indication: DRUG DEPENDENCE
     Route: 064
  4. SUBUTEX [Suspect]
     Indication: DRUG DEPENDENCE
     Route: 064
     Dates: start: 20050919, end: 20060113
  5. ZOPICLONE [Suspect]
     Indication: PRODUCT USED FOR UNKNOWN INDICATION
     Route: 064

REACTIONS (2)
  - Maternal drugs affecting foetus [None]
  - Drug withdrawal syndrome neonatal [None]
